FAERS Safety Report 20146642 (Version 2)
Quarter: 2021Q4

REPORT INFORMATION
  Report Type: Spontaneous
  Country: UY (occurrence: UY)
  Receive Date: 20211203
  Receipt Date: 20211222
  Transmission Date: 20220303
  Serious: Yes (Hospitalization)
  Sender: FDA-Public Use
  Company Number: UY-NOVARTISPH-NVSC2021UY274393

PATIENT
  Age: 66 Year
  Sex: Male

DRUGS (4)
  1. TACROLIMUS [Suspect]
     Active Substance: TACROLIMUS
     Indication: Prophylaxis against transplant rejection
     Dosage: 5.5 MG, BID (5 OF 1MG AND 1 OF 0.5MG)
     Route: 048
     Dates: start: 20140219
  2. TACROLIMUS [Suspect]
     Active Substance: TACROLIMUS
     Dosage: THE PATIENT TOOK GREATER AMOUNTS THAN THOSE INDICATED
     Route: 048
     Dates: end: 20211126
  3. TACROLIMUS [Suspect]
     Active Substance: TACROLIMUS
     Dosage: 3.5 MG, BID
     Route: 048
     Dates: start: 20211130, end: 20211210
  4. TACROLIMUS [Suspect]
     Active Substance: TACROLIMUS
     Dosage: 4.5 MG, BID
     Route: 048
     Dates: start: 20211210

REACTIONS (5)
  - Pulmonary embolism [Unknown]
  - Dyspnoea [Not Recovered/Not Resolved]
  - Drug level increased [Recovered/Resolved]
  - Confusional state [Recovered/Resolved]
  - Wrong dose [Recovered/Resolved]

NARRATIVE: CASE EVENT DATE: 20211110
